FAERS Safety Report 5325279-3 (Version None)
Quarter: 2007Q2

REPORT INFORMATION
  Report Type: 
  Country: None (occurrence: None)
  Receive Date: 20070515
  Receipt Date: 20070507
  Transmission Date: 20071010
  Serious: Yes (Hospitalization)
  Sender: FDA-Public Use
  Company Number: US-ELI_LILLY_AND_COMPANY-US200705002015

PATIENT
  Age: 83 Year
  Sex: Female

DRUGS (2)
  1. FORTEO [Suspect]
     Indication: FRACTURE
     Dosage: 20 UG, UNK
     Dates: start: 20060101, end: 20070401
  2. FORTEO [Suspect]
     Dosage: 20 UG, UNK
     Dates: start: 20070101

REACTIONS (7)
  - BLOODY AIRWAY DISCHARGE [None]
  - COUGH [None]
  - FEELING HOT AND COLD [None]
  - HYPERHIDROSIS [None]
  - INCREASED UPPER AIRWAY SECRETION [None]
  - PROCEDURAL COMPLICATION [None]
  - THROAT IRRITATION [None]
